FAERS Safety Report 7123736-0 (Version None)
Quarter: 2010Q4

REPORT INFORMATION
  Report Type: 
  Country: None (occurrence: None)
  Receive Date: 20101125
  Receipt Date: 20101119
  Transmission Date: 20110411
  Serious: Yes (Death, Other)
  Sender: FDA-Public Use
  Company Number: US-ELI_LILLY_AND_COMPANY-US201007007829

PATIENT
  Sex: Female
  Weight: 72.562 kg

DRUGS (14)
  1. ALIMTA [Suspect]
     Indication: NON-SMALL CELL LUNG CANCER
     Dosage: 500 MG/M2, PER CYCLE
     Route: 042
     Dates: start: 20091207, end: 20100422
  2. GEMZAR [Suspect]
     Indication: NON-SMALL CELL LUNG CANCER
     Dosage: UNK, UNKNOWN
     Route: 065
     Dates: start: 20100801, end: 20100801
  3. ABRAXANE [Concomitant]
     Indication: NON-SMALL CELL LUNG CANCER
     Dosage: UNK, QOD
     Route: 065
     Dates: start: 20100401, end: 20100701
  4. ERLOTINIB HYDROCHLORIDE [Concomitant]
     Indication: NON-SMALL CELL LUNG CANCER
     Dosage: UNK, UNKNOWN
     Route: 065
     Dates: start: 20100801, end: 20100901
  5. CARBOPLATIN [Concomitant]
     Indication: NON-SMALL CELL LUNG CANCER
     Dosage: UNK, UNKNOWN
     Route: 065
     Dates: start: 20091207
  6. VITAMIN B-12 [Concomitant]
     Dosage: UNK, UNKNOWN
     Route: 065
     Dates: start: 20091130, end: 20100401
  7. FOLIC ACID [Concomitant]
     Dosage: UNK, UNKNOWN
     Route: 065
     Dates: start: 20091130, end: 20100401
  8. OXYCODONE HCL [Concomitant]
     Dosage: UNK, UNKNOWN
     Route: 065
  9. LIDOCAINE [Concomitant]
     Dosage: UNK, UNKNOWN
     Route: 065
  10. LORTAB [Concomitant]
     Dosage: UNK, UNKNOWN
     Route: 065
  11. PROMETHAZINE [Concomitant]
     Dosage: UNK, UNKNOWN
     Route: 065
  12. DURAGESIC-100 [Concomitant]
     Dosage: UNK, UNKNOWN
     Route: 065
  13. MORPHINE SULFATE [Concomitant]
     Dosage: UNK, UNKNOWN
     Route: 065
  14. MS CONTIN [Concomitant]
     Dosage: UNK, UNKNOWN
     Route: 065

REACTIONS (3)
  - DEATH [None]
  - DRUG TOXICITY [None]
  - MALIGNANT NEOPLASM PROGRESSION [None]
